FAERS Safety Report 15403331 (Version 1)
Quarter: 2018Q3

REPORT INFORMATION
  Report Type: Report from Study
  Country: PK (occurrence: PK)
  Receive Date: 20180919
  Receipt Date: 20180919
  Transmission Date: 20181010
  Serious: Yes (Other)
  Sender: FDA-Public Use
  Company Number: PK-SAKK-2018SA243659AA

PATIENT
  Age: 38 Year
  Sex: Male

DRUGS (1)
  1. INSULIN GLARGINE [Suspect]
     Active Substance: INSULIN GLARGINE
     Indication: DIABETES MELLITUS
     Dosage: 30 IU, HS
     Route: 058

REACTIONS (2)
  - Hepatic cirrhosis [Recovered/Resolved]
  - Drug dose omission [Unknown]
